FAERS Safety Report 7121273-0 (Version None)
Quarter: 2010Q4

REPORT INFORMATION
  Report Type: 
  Country: None (occurrence: None)
  Receive Date: 20101124
  Receipt Date: 20101118
  Transmission Date: 20110411
  Serious: Yes (Other)
  Sender: FDA-Public Use
  Company Number: US-NAPPMUNDI-USA-2010-0054944

PATIENT
  Sex: Female

DRUGS (2)
  1. OXYCONTIN [Suspect]
     Indication: INTERVERTEBRAL DISC PROTRUSION
     Dosage: 80 MG, Q6H
     Route: 048
     Dates: start: 20101101, end: 20101112
  2. OXYCONTIN [Suspect]
     Indication: BACK INJURY

REACTIONS (4)
  - CHOKING [None]
  - INADEQUATE ANALGESIA [None]
  - PRODUCT SIZE ISSUE [None]
  - STAPHYLOCOCCAL SKIN INFECTION [None]
